FAERS Safety Report 24051790 (Version 2)
Quarter: 2024Q3

REPORT INFORMATION
  Report Type: Spontaneous
  Country: IT (occurrence: IT)
  Receive Date: 20240704
  Receipt Date: 20240718
  Transmission Date: 20241016
  Serious: Yes (Hospitalization)
  Sender: ORGANON
  Company Number: None

PATIENT
  Age: 67 Year
  Sex: Female

DRUGS (1)
  1. ALENDRONATE SODIUM [Suspect]
     Active Substance: ALENDRONATE SODIUM
     Indication: Osteoporosis
     Dosage: 70 MG PER DAY
     Route: 048
     Dates: start: 20240526, end: 20240526

REACTIONS (2)
  - Pyrexia [Recovered/Resolved]
  - Non-cardiac chest pain [Recovering/Resolving]

NARRATIVE: CASE EVENT DATE: 20240527
